FAERS Safety Report 5087492-2 (Version None)
Quarter: 2006Q3

REPORT INFORMATION
  Report Type: 
  Country: None (occurrence: None)
  Receive Date: 20060821
  Receipt Date: 20060809
  Transmission Date: 20061208
  Serious: Yes (Hospitalization, Other)
  Sender: FDA-Public Use
  Company Number: 2006097821

PATIENT
  Sex: Female

DRUGS (1)
  1. CELEBREX [Suspect]
     Indication: ANALGESIC EFFECT
     Dosage: 200 MG
     Dates: start: 20040330

REACTIONS (8)
  - FATIGUE [None]
  - HAEMORRHAGE [None]
  - IATROGENIC INJURY [None]
  - LARGE INTESTINE PERFORATION [None]
  - PROCEDURAL COMPLICATION [None]
  - SURGICAL PROCEDURE REPEATED [None]
  - ULCER [None]
  - ULCER HAEMORRHAGE [None]
